FAERS Safety Report 7588451-8 (Version None)
Quarter: 2011Q3

REPORT INFORMATION
  Report Type: 
  Country: None (occurrence: None)
  Receive Date: 20110705
  Receipt Date: 20110609
  Transmission Date: 20111222
  Serious: Yes (Hospitalization, Other)
  Sender: FDA-Public Use
  Company Number: US-BAYER-2011-042763

PATIENT
  Age: 16 Year
  Sex: Female
  Weight: 100 kg

DRUGS (6)
  1. YASMIN [Suspect]
     Indication: MUSCLE SPASMS
     Dosage: UNK
     Dates: start: 20061001, end: 20091001
  2. NAPROXEN SODIUM + PSEUDOEPHEDRINE [Concomitant]
     Dosage: UNK
     Dates: start: 20090101, end: 20091201
  3. ZOLOFT [Concomitant]
     Indication: DEPRESSION
     Dosage: UNK
     Dates: start: 20080101
  4. DROSPIRENONE AND ETHINYL ESTRADIOL [Suspect]
     Indication: MUSCLE SPASMS
     Dosage: UNK
     Dates: start: 20061001, end: 20091001
  5. DROSPIRENONE AND ETHINYL ESTRADIOL [Suspect]
     Indication: CYST
  6. YASMIN [Suspect]
     Indication: CYST

REACTIONS (6)
  - EMOTIONAL DISTRESS [None]
  - ANHEDONIA [None]
  - INJURY [None]
  - PAIN [None]
  - CHOLECYSTECTOMY [None]
  - HEPATIC LESION [None]
